FAERS Safety Report 20481773 (Version 1)
Quarter: 2022Q1

REPORT INFORMATION
  Report Type: Spontaneous
  Country: US (occurrence: US)
  Receive Date: 20220216
  Receipt Date: 20220216
  Transmission Date: 20220424
  Serious: No
  Sender: FDA-Public Use
  Company Number: US-ELI_LILLY_AND_COMPANY-US202202005797

PATIENT
  Sex: Male

DRUGS (2)
  1. BASAGLAR [Suspect]
     Active Substance: INSULIN GLARGINE
     Indication: Product used for unknown indication
     Dosage: 64 U, UNKNOWN
     Route: 058
     Dates: start: 20220201
  2. BASAGLAR [Suspect]
     Active Substance: INSULIN GLARGINE
     Dosage: 66 U, UNKNOWN
     Route: 058
     Dates: start: 20220201

REACTIONS (1)
  - Blood glucose fluctuation [Unknown]
